FAERS Safety Report 5105483-X (Version None)
Quarter: 2006Q3

REPORT INFORMATION
  Report Type: 
  Country: None (occurrence: None)
  Receive Date: 20060915
  Receipt Date: 20060904
  Transmission Date: 20061208
  Serious: Yes (Other)
  Sender: FDA-Public Use
  Company Number: PHBS2006ZA13403

PATIENT
  Age: 59 Year
  Sex: Male

DRUGS (1)
  1. ZOMETA [Suspect]
     Indication: METASTASES TO BONE
     Dosage: 4 MG, AT 3 WEEKLY INTERVALS
     Route: 042
     Dates: start: 20030912, end: 20050725

REACTIONS (5)
  - BLOOD CREATININE INCREASED [None]
  - OSTEOMYELITIS [None]
  - OSTEONECROSIS [None]
  - RENAL IMPAIRMENT [None]
  - TOOTHACHE [None]
